FAERS Safety Report 19915626 (Version 3)
Quarter: 2022Q1

REPORT INFORMATION
  Report Type: Spontaneous
  Country: US (occurrence: US)
  Receive Date: 20211005
  Receipt Date: 20220209
  Transmission Date: 20220423
  Serious: No
  Sender: FDA-Public Use
  Company Number: US-THERATECHNOLOGIES INC.-2021-THE-TES-000260

PATIENT
  Age: 73 Year
  Sex: Male

DRUGS (2)
  1. EGRIFTA SV [Suspect]
     Active Substance: TESAMORELIN ACETATE
     Indication: Product used for unknown indication
     Dosage: UNK
     Route: 058
     Dates: start: 2010
  2. EGRIFTA SV [Suspect]
     Active Substance: TESAMORELIN ACETATE
     Dosage: UNK
     Route: 058

REACTIONS (13)
  - Fatigue [Unknown]
  - Therapeutic product effect decreased [Unknown]
  - Dry mouth [Unknown]
  - Gastrointestinal disorder [Unknown]
  - Product preparation issue [Unknown]
  - Product distribution issue [Unknown]
  - Product container seal issue [Unknown]
  - Product physical issue [Unknown]
  - Abdominal distension [Unknown]
  - Product dose omission issue [Unknown]
  - Product container seal issue [Unknown]
  - Product quality issue [Unknown]
  - Product preparation issue [Unknown]

NARRATIVE: CASE EVENT DATE: 20211201
